FAERS Safety Report 17309830 (Version 2)
Quarter: 2020Q1

REPORT INFORMATION
  Report Type: Report from Study
  Country: US (occurrence: US)
  Receive Date: 20200123
  Receipt Date: 20200303
  Transmission Date: 20200409
  Serious: Yes (Death)
  Sender: FDA-Public Use
  Company Number: US-ACTELION-A-US2019-198570

PATIENT
  Age: 76 Year
  Sex: Female

DRUGS (13)
  1. HUMALOG [Concomitant]
     Active Substance: INSULIN LISPRO
  2. SIMVASTATIN. [Concomitant]
     Active Substance: SIMVASTATIN
  3. TORSEMIDE. [Concomitant]
     Active Substance: TORSEMIDE
  4. METOLAZONE. [Concomitant]
     Active Substance: METOLAZONE
  5. UPTRAVI [Suspect]
     Active Substance: SELEXIPAG
     Indication: PULMONARY ARTERIAL HYPERTENSION
     Dosage: UNK
     Route: 048
     Dates: start: 20190306
  6. JANUVIA [Concomitant]
     Active Substance: SITAGLIPTIN PHOSPHATE
  7. UPTRAVI [Suspect]
     Active Substance: SELEXIPAG
     Dosage: 1600 MCG, BID
     Route: 048
     Dates: end: 20191231
  8. DIGOXIN. [Concomitant]
     Active Substance: DIGOXIN
  9. LANTUS [Concomitant]
     Active Substance: INSULIN GLARGINE
  10. WARFARIN [Concomitant]
     Active Substance: WARFARIN
  11. MIDODRINE [Concomitant]
     Active Substance: MIDODRINE
  12. SILDENAFIL. [Concomitant]
     Active Substance: SILDENAFIL
  13. METOPROLOL. [Concomitant]
     Active Substance: METOPROLOL

REACTIONS (2)
  - Death [Fatal]
  - Alopecia [Unknown]

NARRATIVE: CASE EVENT DATE: 20191231
